FAERS Safety Report 5288109-4 (Version None)
Quarter: 2007Q2

REPORT INFORMATION
  Report Type: 
  Country: None (occurrence: None)
  Receive Date: 20070405
  Receipt Date: 20070330
  Transmission Date: 20071010
  Serious: Yes (Other)
  Sender: FDA-Public Use
  Company Number: 2006UW10920

PATIENT
  Age: 395 Month
  Sex: Female
  Weight: 139 kg

DRUGS (5)
  1. SEROQUEL [Suspect]
     Indication: SLEEP DISORDER
     Route: 048
     Dates: start: 20041203, end: 20060501
  2. RISPERDAL [Concomitant]
     Dates: start: 20010101
  3. DEXATRIM [Concomitant]
  4. TOPAMAX [Concomitant]
  5. XANTRAX [Concomitant]

REACTIONS (2)
  - INJURY [None]
  - KETOACIDOSIS [None]
